FAERS Safety Report 19848978 (Version 4)
Quarter: 2022Q1

REPORT INFORMATION
  Report Type: Report from Study
  Country: US (occurrence: US)
  Receive Date: 20210918
  Receipt Date: 20220120
  Transmission Date: 20220423
  Serious: No
  Sender: FDA-Public Use
  Company Number: NVSC2021US212225

PATIENT
  Sex: Female

DRUGS (1)
  1. COSENTYX [Suspect]
     Active Substance: SECUKINUMAB
     Indication: Psoriatic arthropathy
     Dosage: 150 MG, QMO
     Route: 058

REACTIONS (5)
  - Blood blister [Unknown]
  - Feeling abnormal [Unknown]
  - Viral infection [Unknown]
  - Injection site bruising [Unknown]
  - Incorrect dose administered [Unknown]
